FAERS Safety Report 23596092 (Version 4)
Quarter: 2025Q3

REPORT INFORMATION
  Report Type: Spontaneous
  Country: US (occurrence: US)
  Receive Date: 20240305
  Receipt Date: 20250825
  Transmission Date: 20251020
  Serious: No
  Sender: PFIZER
  Company Number: US-PFIZER INC-202400055241

PATIENT
  Age: 36 Year
  Sex: Female
  Weight: 96.16 kg

DRUGS (2)
  1. CIBINQO [Suspect]
     Active Substance: ABROCITINIB
     Indication: Dermatitis atopic
     Dosage: 100 MG, 1X/DAY (AT NIGHT DURING HER DINNER SWALLOW IT)
     Route: 048
     Dates: start: 202311
  2. CIBINQO [Suspect]
     Active Substance: ABROCITINIB

REACTIONS (5)
  - Blood cholesterol increased [Not Recovered/Not Resolved]
  - Low density lipoprotein increased [Not Recovered/Not Resolved]
  - Abdominal pain upper [Unknown]
  - Intentional product misuse [Unknown]
  - Wrong technique in product usage process [Unknown]

NARRATIVE: CASE EVENT DATE: 20231101
